FAERS Safety Report 22761596 (Version 5)
Quarter: 2024Q1

REPORT INFORMATION
  Report Type: Report from Study
  Country: US (occurrence: US)
  Receive Date: 20230728
  Receipt Date: 20240306
  Transmission Date: 20240409
  Serious: Yes (Hospitalization, Other)
  Sender: FDA-Public Use
  Company Number: US-ARGENX-2023-ARGX-US002462

PATIENT

DRUGS (9)
  1. VYVGART [Suspect]
     Active Substance: EFGARTIGIMOD ALFA-FCAB
     Indication: Myasthenia gravis
     Dosage: UNK
     Route: 042
     Dates: start: 20230426, end: 20231018
  2. VYVGART [Suspect]
     Active Substance: EFGARTIGIMOD ALFA-FCAB
     Dosage: UNK
     Route: 065
     Dates: start: 202307
  3. LISINOPRIL [Concomitant]
     Active Substance: LISINOPRIL
     Indication: Product used for unknown indication
     Dosage: 20 MG, DAILY
     Route: 065
  4. VITAMINS [Concomitant]
     Active Substance: VITAMINS
     Indication: Product used for unknown indication
     Dosage: UNK, DAILY
     Route: 065
  5. VITAMIN B12 [Concomitant]
     Active Substance: CYANOCOBALAMIN
     Indication: Supplementation therapy
     Dosage: UNK
     Route: 065
  6. VITAMIN D3 [Concomitant]
     Active Substance: CHOLECALCIFEROL
     Indication: Supplementation therapy
     Route: 065
  7. IRON [Concomitant]
     Active Substance: IRON
     Indication: Supplementation therapy
     Route: 065
  8. VITAMIN B COMPLEX [Concomitant]
     Active Substance: CYANOCOBALAMIN\DEXPANTHENOL\NIACINAMIDE\PYRIDOXINE HYDROCHLORIDE\RIBOFLAVIN 5^-PHOSPHATE SODIUM\THIA
     Indication: Supplementation therapy
     Route: 065
  9. ASPIRIN [Concomitant]
     Active Substance: ASPIRIN
     Indication: Product used for unknown indication
     Route: 065

REACTIONS (14)
  - Spinal cord compression [Unknown]
  - Urinary tract infection [Unknown]
  - Cerebral haemorrhage [Not Recovered/Not Resolved]
  - Urinary tract infection [Unknown]
  - Fall [Not Recovered/Not Resolved]
  - Wound complication [Not Recovered/Not Resolved]
  - Bedridden [Not Recovered/Not Resolved]
  - Dysarthria [Unknown]
  - Dysstasia [Unknown]
  - Diarrhoea [Recovering/Resolving]
  - Asthenia [Unknown]
  - Gait inability [Unknown]
  - Therapy cessation [Unknown]
  - Fall [Unknown]

NARRATIVE: CASE EVENT DATE: 20231001
